FAERS Safety Report 8551208-5 (Version None)
Quarter: 2012Q3

REPORT INFORMATION
  Report Type: 
  Country: None (occurrence: None)
  Receive Date: 20120730
  Receipt Date: 20120718
  Transmission Date: 20120928
  Serious: Yes (Other)
  Sender: FDA-Public Use
  Company Number: JP-ELI_LILLY_AND_COMPANY-JP201204001465

PATIENT
  Age: 87 Year
  Sex: Female

DRUGS (2)
  1. LEVOTHYROXINE SODIUM [Concomitant]
     Route: 048
  2. FORTEO [Suspect]
     Indication: OSTEOPOROSIS
     Dosage: 20 UG, QD
     Route: 058
     Dates: start: 20120215, end: 20120327

REACTIONS (2)
  - ASPARTATE AMINOTRANSFERASE INCREASED [None]
  - BLOOD POTASSIUM INCREASED [None]
